FAERS Safety Report 9061552 (Version 1)
Quarter: 2013Q1

REPORT INFORMATION
  Report Type: Spontaneous
  Country: US (occurrence: None)
  Receive Date: 20130208
  Receipt Date: 20130208
  Transmission Date: 20140127
  Serious: Yes (Life-Threatening, Other)
  Sender: FDA-Public Use
  Company Number: None

PATIENT
  Age: 52 Year
  Sex: Female
  Weight: 63.5 kg

DRUGS (1)
  1. ZIRGAN [Suspect]
     Route: 047
     Dates: start: 20130131, end: 20130202

REACTIONS (6)
  - Panic attack [None]
  - Anxiety [None]
  - Hypoaesthesia [None]
  - Paraesthesia [None]
  - Chest discomfort [None]
  - Dyspnoea [None]
